FAERS Safety Report 4526553-0 (Version None)
Quarter: 2004Q4

REPORT INFORMATION
  Report Type: 
  Country: None (occurrence: None)
  Receive Date: 20041210
  Receipt Date: 20041201
  Transmission Date: 20050328
  Serious: Yes (Life-Threatening, Hospitalization)
  Sender: FDA-Public Use
  Company Number: 2004100443

PATIENT
  Age: 19 Year
  Sex: Male

DRUGS (8)
  1. DOXORUBICIN HYDROCHLORIDE [Suspect]
     Indication: HODGKIN'S DISEASE
     Dosage: 35 MG (1 DAY), INTRAVENOUS
     Route: 042
     Dates: start: 20040830, end: 20040830
  2. CYCLOPHOSPHAMIDE [Suspect]
     Indication: HODGKIN'S DISEASE
     Dosage: 1250 MG /M2* 2 (1 DAY), INTRAVENOUS
     Route: 042
     Dates: start: 20040830, end: 20040830
  3. VINCRISTINE SULFATE [Suspect]
     Indication: HODGKIN'S DISEASE
     Dosage: 1.4 MG/M*2 (1 DAY), INTRAVENOUS
     Route: 042
     Dates: start: 20040830, end: 20040830
  4. PROCARBAZINE (PROCARBAZINE HCL) (PROCARBAZINE HYDROCHLORIDE) [Suspect]
     Indication: HODGKIN'S DISEASE
     Dosage: 100 MG/M*2 (1 DAY), ORAL
     Route: 048
     Dates: start: 20040830, end: 20040830
  5. PREDNISOLONE [Suspect]
     Indication: HODGKIN'S DISEASE
     Dosage: 40 MG/M*2, ORAL
     Route: 048
     Dates: start: 20040830, end: 20040830
  6. ETOPOSIDE [Suspect]
     Indication: HODGKIN'S DISEASE
     Dosage: 200 MG/M*2, INTRAVENOUS
     Route: 042
     Dates: start: 20040830, end: 20040830
  7. BLEOMYCIN [Concomitant]
  8. GRANULOCYTE COLONY STIMULATING FACTOR (GRANULOCYTE COLONY STIMULATING [Concomitant]

REACTIONS (9)
  - AGRANULOCYTOSIS [None]
  - ANAEMIA [None]
  - CARDIOVASCULAR DISORDER [None]
  - GENERAL PHYSICAL HEALTH DETERIORATION [None]
  - MUCOSAL INFLAMMATION [None]
  - NECROSIS [None]
  - SEPTIC SHOCK [None]
  - STAPHYLOCOCCAL SEPSIS [None]
  - THROMBOCYTOPENIA [None]
